FAERS Safety Report 7875339-8 (Version None)
Quarter: 2011Q4

REPORT INFORMATION
  Report Type: 
  Country: None (occurrence: None)
  Receive Date: 20111031
  Receipt Date: 20111018
  Transmission Date: 20120403
  Serious: Yes (Hospitalization)
  Sender: FDA-Public Use
  Company Number: US-GLAXOSMITHKLINE-A0893015A

PATIENT
  Age: 52 Year
  Sex: Male
  Weight: 109.1 kg

DRUGS (6)
  1. METFORMIN HCL [Concomitant]
  2. GLIPIZIDE [Concomitant]
  3. NORVASC [Concomitant]
  4. CONCURRENT MEDICATIONS [Concomitant]
  5. AVANDIA [Suspect]
     Indication: DIABETES MELLITUS
     Dosage: 4MG TWICE PER DAY
     Route: 048
     Dates: start: 19980101, end: 20080511
  6. AVANDAMET [Suspect]
     Indication: DIABETES MELLITUS
     Dosage: 1TAB TWICE PER DAY
     Route: 048

REACTIONS (26)
  - CARDIAC FAILURE CONGESTIVE [None]
  - ILL-DEFINED DISORDER [None]
  - DIZZINESS [None]
  - PALPITATIONS [None]
  - CARDIOVASCULAR DISORDER [None]
  - CEREBROVASCULAR ACCIDENT [None]
  - DYSPNOEA [None]
  - KIDNEY INFECTION [None]
  - SEPSIS [None]
  - DECREASED INTEREST [None]
  - SWELLING [None]
  - APPARENT DEATH [None]
  - HYPOGLYCAEMIA [None]
  - ABASIA [None]
  - VISUAL IMPAIRMENT [None]
  - CARDIAC INFECTION [None]
  - EYE DISORDER [None]
  - HEMIPLEGIA [None]
  - PAIN [None]
  - CARDIAC DISORDER [None]
  - OEDEMA PERIPHERAL [None]
  - MEMORY IMPAIRMENT [None]
  - DYSURIA [None]
  - CARDIAC ARREST [None]
  - HEADACHE [None]
  - CONDITION AGGRAVATED [None]
